FAERS Safety Report 14151726 (Version 2)
Quarter: 2019Q3

REPORT INFORMATION
  Report Type: Spontaneous
  Country: FR (occurrence: FR)
  Receive Date: 20171102
  Receipt Date: 20190803
  Transmission Date: 20191004
  Serious: Yes (Death, Life-Threatening, Hospitalization, Other)
  Sender: FDA-Public Use
  Company Number: FR-AUROBINDO-AUR-APL-2017-42890

PATIENT

DRUGS (1)
  1. IBUPROFEN FILM-COATED TABLET [Suspect]
     Active Substance: IBUPROFEN
     Indication: PHARYNGITIS
     Dosage: UNK
     Route: 048

REACTIONS (7)
  - Clostridial infection [Fatal]
  - Septic shock [Fatal]
  - Agranulocytosis [Unknown]
  - Condition aggravated [Fatal]
  - Muscle necrosis [Fatal]
  - Sepsis [Fatal]
  - Decreased immune responsiveness [Unknown]
